FAERS Safety Report 4597032-X (Version None)
Quarter: 2005Q1

REPORT INFORMATION
  Report Type: 
  Country: None (occurrence: None)
  Receive Date: 20050301
  Receipt Date: 20050216
  Transmission Date: 20050727
  Serious: Yes (Other)
  Sender: FDA-Public Use
  Company Number: 2005031903

PATIENT
  Age: 54 Year
  Sex: Male
  Weight: 83.9154 kg

DRUGS (3)
  1. LISTERINE (MENTHOL METHYL SALICYLATE EUCALYPTOL THYMOL) [Suspect]
     Indication: ALCOHOLIC
     Dosage: 2-4 OUNCES DAILY, ORAL
     Route: 048
     Dates: start: 20041201
  2. INSULIN [Concomitant]
  3. ANTIDEPRESSANTS (ANTIDEPRESSANTS) [Concomitant]

REACTIONS (2)
  - CONVULSION [None]
  - INTENTIONAL MISUSE [None]
